FAERS Safety Report 4724873-8 (Version None)
Quarter: 2005Q3

REPORT INFORMATION
  Report Type: 
  Country: None (occurrence: None)
  Receive Date: 20050720
  Receipt Date: 20050720
  Transmission Date: 20060218
  Serious: Yes (Hospitalization)
  Sender: FDA-Public Use
  Company Number: None

PATIENT
  Age: 64 Year
  Sex: Female

DRUGS (11)
  1. METHOTREXATE [Suspect]
     Indication: RHEUMATOID ARTHRITIS
     Dosage: 10MG PO WEEKLY
     Route: 048
     Dates: start: 20040510, end: 20050401
  2. LEFLUNOMIDE [Suspect]
     Indication: RHEUMATOID ARTHRITIS
     Dosage: 20MG PO QD
     Route: 048
     Dates: start: 20031105, end: 20050401
  3. FOLIC ACID [Concomitant]
  4. HYDROCHLOROTHIAZIDE [Concomitant]
  5. TRIAMTERENE [Concomitant]
  6. LEFLUNOMIDE [Concomitant]
  7. LISINOPRIL [Concomitant]
  8. METHOTREXATE [Concomitant]
  9. PREDNISONE [Concomitant]
  10. M.V.I. [Concomitant]
  11. CALCIUM + D [Concomitant]

REACTIONS (2)
  - ANAEMIA [None]
  - LEUKOPENIA [None]
